FAERS Safety Report 9713363 (Version 2)
Quarter: 2013Q4

REPORT INFORMATION
  Report Type: Spontaneous
  Country: FI (occurrence: FI)
  Receive Date: 20131126
  Receipt Date: 20131209
  Transmission Date: 20140711
  Serious: Yes (Hospitalization)
  Sender: FDA-Public Use
  Company Number: FI-TEVA-446165ISR

PATIENT
  Age: 23 Year
  Sex: Female

DRUGS (3)
  1. COPAXONE 20 MG/ML SOLUTION FOR INJECTION IN PRE-FILLED SYRINGE [Suspect]
     Indication: MULTIPLE SCLEROSIS
     Dosage: 20 MILLIGRAM DAILY;
     Route: 058
     Dates: start: 20130625, end: 20130828
  2. NORITREN [Concomitant]
     Indication: NEURALGIA
     Dosage: 50 MILLIGRAM DAILY;
     Route: 048
     Dates: start: 20120516
  3. THYROXIN [Concomitant]
     Indication: HYPERTHYROIDISM
     Dosage: 25 MICROGRAM DAILY;
     Route: 048
     Dates: start: 20121217

REACTIONS (5)
  - Neutropenia [Recovered/Resolved]
  - Multiple sclerosis [Unknown]
  - Pyrexia [Recovered/Resolved]
  - Upper respiratory tract infection [Recovered/Resolved]
  - Oral herpes [Unknown]
